FAERS Safety Report 4720506-5 (Version None)
Quarter: 2005Q3

REPORT INFORMATION
  Report Type: 
  Country: None (occurrence: None)
  Receive Date: 20050721
  Receipt Date: 20050310
  Transmission Date: 20060218
  Serious: No
  Sender: FDA-Public Use
  Company Number: US-BRISTOL-MYERS SQUIBB COMPANY-12893657

PATIENT
  Age: 41 Year
  Sex: Female

DRUGS (7)
  1. GLUCOVANCE [Suspect]
     Indication: DIABETES MELLITUS
     Dosage: 5MG/250MG BID
     Route: 048
     Dates: start: 20030801, end: 20040801
  2. TEGRETOL [Concomitant]
  3. LITHIUM [Concomitant]
  4. ZOLOFT [Concomitant]
  5. LOTREL [Concomitant]
  6. PRAVACHOL [Concomitant]
  7. PREVACID [Concomitant]

REACTIONS (1)
  - BLOOD GLUCOSE DECREASED [None]
